FAERS Safety Report 5709646-1 (Version None)
Quarter: 2008Q2

REPORT INFORMATION
  Report Type: 
  Country: None (occurrence: None)
  Receive Date: 20080418
  Receipt Date: 20080416
  Transmission Date: 20081010
  Serious: Yes (Other)
  Sender: FDA-Public Use
  Company Number: B0516888A

PATIENT
  Age: 38 Year
  Sex: Male

DRUGS (5)
  1. VALTREX [Suspect]
     Indication: KAPOSI'S VARICELLIFORM ERUPTION
     Dosage: 500MG TWICE PER DAY
     Route: 048
     Dates: start: 20080307, end: 20080311
  2. BAKTAR [Suspect]
     Indication: DRUG USE FOR UNKNOWN INDICATION
     Route: 048
     Dates: start: 20080307, end: 20080320
  3. NEORAL [Concomitant]
     Indication: DRUG USE FOR UNKNOWN INDICATION
     Route: 048
     Dates: start: 20080315, end: 20080317
  4. ULGUT [Concomitant]
     Indication: DRUG USE FOR UNKNOWN INDICATION
     Route: 048
     Dates: start: 20080307, end: 20080314
  5. ALLEGRA [Concomitant]
     Indication: DRUG USE FOR UNKNOWN INDICATION
     Route: 048
     Dates: start: 20080130

REACTIONS (3)
  - HEPATIC FUNCTION ABNORMAL [None]
  - NEUTROPENIA [None]
  - RASH [None]
